FAERS Safety Report 22937666 (Version 2)
Quarter: 2023Q4

REPORT INFORMATION
  Report Type: Spontaneous
  Country: US (occurrence: US)
  Receive Date: 20230913
  Receipt Date: 20231010
  Transmission Date: 20240109
  Serious: Yes (Other)
  Sender: FDA-Public Use
  Company Number: US-MLMSERVICE-20230828-4510590-1

PATIENT
  Age: 34 Year
  Sex: Male

DRUGS (7)
  1. AZITHROMYCIN [Suspect]
     Active Substance: AZITHROMYCIN
     Indication: Disseminated mycobacterium avium complex infection
     Dosage: UNK
     Route: 065
  2. PREDNISONE [Suspect]
     Active Substance: PREDNISONE
     Indication: Immune reconstitution inflammatory syndrome
     Dosage: 1 MILLIGRAM/KILOGRAM, ONCE A DAY
     Route: 065
  3. ETHAMBUTOL [Suspect]
     Active Substance: ETHAMBUTOL HYDROCHLORIDE
     Indication: Disseminated mycobacterium avium complex infection
     Dosage: UNK
     Route: 065
  4. RIFABUTIN [Suspect]
     Active Substance: RIFABUTIN
     Indication: Disseminated mycobacterium avium complex infection
     Dosage: UNK
     Route: 065
  5. BICTEGRAVIR\EMTRICITABINE\TENOFOVIR ALAFENAMIDE [Concomitant]
     Active Substance: BICTEGRAVIR\EMTRICITABINE\TENOFOVIR ALAFENAMIDE
     Indication: HIV infection
     Dosage: UNK
     Route: 065
  6. MOXIFLOXACIN [Concomitant]
     Active Substance: MOXIFLOXACIN
     Indication: Antibiotic therapy
     Dosage: UNK
     Route: 065
  7. TEDIZOLID [Concomitant]
     Active Substance: TEDIZOLID
     Indication: Antibiotic therapy
     Dosage: UNK
     Route: 065

REACTIONS (5)
  - Cytomegalovirus chorioretinitis [Recovered/Resolved]
  - Infection reactivation [Recovered/Resolved]
  - Varicella zoster virus infection [Recovered/Resolved]
  - Drug ineffective [Unknown]
  - Off label use [Unknown]
